FAERS Safety Report 16030307 (Version 1)
Quarter: 2019Q2

REPORT INFORMATION
  Report Type: Spontaneous
  Country: US (occurrence: US)
  Receive Date: 20190304
  Receipt Date: 20190304
  Transmission Date: 20190711
  Serious: Yes (Other)
  Sender: FDA-Public Use
  Company Number: None

PATIENT
  Age: 52 Year
  Sex: Female
  Weight: 88.65 kg

DRUGS (12)
  1. FLONASE [Concomitant]
     Active Substance: FLUTICASONE PROPIONATE
  2. CLONIDINE. [Concomitant]
     Active Substance: CLONIDINE
  3. CETRIZINE HCL [Concomitant]
  4. POTASSIUM CL ER [Concomitant]
     Active Substance: POTASSIUM CHLORIDE
  5. ALBUTEROL. [Concomitant]
     Active Substance: ALBUTEROL
  6. AZELASTINE HCL [Concomitant]
     Active Substance: AZELASTINE HYDROCHLORIDE
  7. MEDTRONIC INSULIN PUMP [Concomitant]
  8. HUMALOG [Concomitant]
     Active Substance: INSULIN LISPRO
  9. NORVASC [Concomitant]
     Active Substance: AMLODIPINE BESYLATE
  10. OLMESARTAN-HCTZ [Suspect]
     Active Substance: HYDROCHLOROTHIAZIDE\OLMESARTAN MEDOXOMIL
     Indication: HYPERTENSION
     Dosage: ?          QUANTITY:1 TABLET(S);?
     Route: 048
     Dates: start: 20190301, end: 20190303
  11. SIMVASTATIN. [Concomitant]
     Active Substance: SIMVASTATIN
  12. MULTIVITAMINS [Concomitant]
     Active Substance: VITAMINS

REACTIONS (3)
  - Product substitution issue [None]
  - Therapy non-responder [None]
  - Blood glucose increased [None]

NARRATIVE: CASE EVENT DATE: 20190302
